FAERS Safety Report 8951246 (Version 1)
Quarter: 2012Q4

REPORT INFORMATION
  Report Type: 
  Country: GB (occurrence: GB)
  Receive Date: 20121207
  Receipt Date: 20121207
  Transmission Date: 20130627
  Serious: Yes (Other)
  Sender: FDA-Public Use
  Company Number: GB-BIOGENIDEC-2012BI056842

PATIENT
  Age: 21 Year
  Sex: Female

DRUGS (12)
  1. TYSABRI [Suspect]
     Indication: MULTIPLE SCLEROSIS
     Route: 042
     Dates: start: 20110426, end: 20120621
  2. TYSABRI [Suspect]
     Indication: MULTIPLE SCLEROSIS
     Route: 042
     Dates: start: 20120822
  3. CYCLIZINE [Concomitant]
  4. DOMPERIDONE [Concomitant]
  5. GABAPENTIN [Concomitant]
  6. HYOSCINE [Concomitant]
  7. LANSOPRAZOLE [Concomitant]
  8. ONDASETRON [Concomitant]
  9. OXYNORM [Concomitant]
  10. OXYNORM [Concomitant]
  11. PARACETAMOL [Concomitant]
  12. RANITIDINE [Concomitant]

REACTIONS (1)
  - Blighted ovum [Unknown]
